FAERS Safety Report 13505434 (Version 6)
Quarter: 2018Q4

REPORT INFORMATION
  Report Type: Report from Study
  Country: DE (occurrence: DE)
  Receive Date: 20170502
  Receipt Date: 20181024
  Transmission Date: 20190204
  Serious: Yes (Other)
  Sender: FDA-Public Use
  Company Number: PHHY2017DE045466

PATIENT
  Age: 33 Year
  Sex: Female
  Weight: 102 kg

DRUGS (7)
  1. GILENYA [Suspect]
     Active Substance: FINGOLIMOD HYDROCHLORIDE
     Indication: MULTIPLE SCLEROSIS
     Dosage: 0.5 MG, QD
     Route: 048
     Dates: start: 20160428, end: 20170104
  2. ESCITALOPRAM [Concomitant]
     Active Substance: ESCITALOPRAM OXALATE
     Indication: DEPRESSION
     Dosage: 10 MG/DL, UNK
     Route: 065
     Dates: start: 20171207, end: 20180127
  3. GILENYA [Suspect]
     Active Substance: FINGOLIMOD HYDROCHLORIDE
     Dosage: 0.5 MG, QD
     Route: 048
     Dates: start: 20170113, end: 20170425
  4. GILENYA [Suspect]
     Active Substance: FINGOLIMOD HYDROCHLORIDE
     Dosage: DAILY DOSE: 0.5 MG MILLIGRAM(S) EVERY DAY
     Route: 048
     Dates: start: 20160428, end: 20170104
  5. GILENYA [Suspect]
     Active Substance: FINGOLIMOD HYDROCHLORIDE
     Dosage: 0.5 UNK, UNK
     Route: 048
     Dates: start: 20180505
  6. DEKRISTOL [Concomitant]
     Active Substance: CHOLECALCIFEROL
     Indication: VITAMIN D DEFICIENCY
     Dosage: 20000 UNK, UNK
     Route: 065
     Dates: start: 20180108, end: 20180125
  7. GILENYA [Suspect]
     Active Substance: FINGOLIMOD HYDROCHLORIDE
     Dosage: 0.5 MG, QD
     Route: 048
     Dates: start: 20170505, end: 20180504

REACTIONS (9)
  - Lymphopenia [Recovered/Resolved]
  - Nasopharyngitis [Recovered/Resolved]
  - Lymphopenia [Recovered/Resolved]
  - Nasopharyngitis [Recovered/Resolved]
  - Nasopharyngitis [Recovered/Resolved]
  - Hypertension [Unknown]
  - Hypertensive crisis [Recovered/Resolved]
  - White blood cell count decreased [Unknown]
  - Ear disorder [Recovered/Resolved]

NARRATIVE: CASE EVENT DATE: 20160713
